FAERS Safety Report 4941838-1 (Version None)
Quarter: 2006Q1

REPORT INFORMATION
  Report Type: 
  Country: None (occurrence: None)
  Receive Date: 20060313
  Receipt Date: 20060309
  Transmission Date: 20060701
  Serious: Yes (Death, Other)
  Sender: FDA-Public Use
  Company Number: JP-SANOFI-SYNTHELABO-F01200600705

PATIENT
  Sex: Female
  Weight: 49 kg

DRUGS (3)
  1. OXALIPLATIN [Suspect]
     Indication: COLON CANCER
     Dosage: 125 MG/BODY=86.2 MG/M2
     Route: 042
     Dates: start: 20051031, end: 20051031
  2. FLUOROURACIL [Suspect]
     Dosage: 600 MG/BODY=413.8 MG/M2 IN BOLUS THEN 900 MG/BODY=620.7 MG/M2 AS CONTINUOUS INFUSION
     Route: 042
     Dates: start: 20051031, end: 20051101
  3. CALCIUM LEVOFOLINATE [Suspect]
     Dosage: 150 MG/BODY=103.4 MG/M2
     Route: 042
     Dates: start: 20051031, end: 20051101

REACTIONS (4)
  - HAEMOGLOBIN DECREASED [None]
  - LEUKOPENIA [None]
  - NEUTROPENIA [None]
  - THROMBOCYTOPENIA [None]
